FAERS Safety Report 7680673-0 (Version None)
Quarter: 2011Q3

REPORT INFORMATION
  Report Type: 
  Country: None (occurrence: None)
  Receive Date: 20110812
  Receipt Date: 20110809
  Transmission Date: 20111222
  Serious: Yes (Other)
  Sender: FDA-Public Use
  Company Number: US-PFIZER INC-2011164918

PATIENT
  Sex: Male
  Weight: 61.2 kg

DRUGS (3)
  1. DILANTIN [Suspect]
     Dosage: 400 MG PER DAY
  2. ACETYLSALICYLIC ACID [Concomitant]
     Dosage: 81 MG, UNK
  3. DILANTIN [Suspect]
     Indication: EPILEPSY
     Dosage: 100 MG, 3X/DAY
     Route: 048
     Dates: start: 19641101

REACTIONS (4)
  - CONVULSION [None]
  - TREMOR [None]
  - DRUG LEVEL DECREASED [None]
  - INSOMNIA [None]
